FAERS Safety Report 9745233 (Version 2)
Quarter: 2017Q4

REPORT INFORMATION
  Report Type: Spontaneous
  Country: US (occurrence: US)
  Receive Date: 20131211
  Receipt Date: 20171017
  Transmission Date: 20180321
  Serious: No
  Sender: FDA-Public Use
  Company Number: US-PFIZER INC-2013351018

PATIENT
  Age: 77 Year
  Sex: Female
  Weight: 62.59 kg

DRUGS (1)
  1. TOVIAZ [Suspect]
     Active Substance: FESOTERODINE FUMARATE
     Indication: URINARY INCONTINENCE
     Dosage: 8 MG, SINGLE
     Dates: start: 2013, end: 2013

REACTIONS (4)
  - Pruritus [Recovered/Resolved]
  - Dry mouth [Unknown]
  - Hypersensitivity [Recovered/Resolved]
  - Urticaria [Recovered/Resolved]

NARRATIVE: CASE EVENT DATE: 2013
